FAERS Safety Report 16770406 (Version 3)
Quarter: 2019Q3

REPORT INFORMATION
  Report Type: Spontaneous
  Country: US (occurrence: US)
  Receive Date: 20190904
  Receipt Date: 20190923
  Transmission Date: 20191005
  Serious: Yes (Other)
  Sender: FDA-Public Use
  Company Number: PHEH2019US036073

PATIENT
  Age: 7 Year
  Sex: Female

DRUGS (2)
  1. KYMRIAH [Suspect]
     Active Substance: TISAGENLECLEUCEL
     Indication: ACUTE LYMPHOCYTIC LEUKAEMIA
     Dosage: (0.2-5X10^6/KG CAR-POSITIVE T-CELLS)(FIRST DOSE)
     Route: 065
  2. KYMRIAH [Suspect]
     Active Substance: TISAGENLECLEUCEL
     Dosage: (SECOND DOSE)
     Route: 065
     Dates: start: 201905

REACTIONS (4)
  - Acute lymphocytic leukaemia recurrent [Unknown]
  - B-cell aplasia [Unknown]
  - Central nervous system leukaemia [Unknown]
  - Skin lesion [Unknown]
